FAERS Safety Report 21465547 (Version 1)
Quarter: 2022Q4

REPORT INFORMATION
  Report Type: Spontaneous
  Country: US (occurrence: None)
  Receive Date: 20221014
  Receipt Date: 20221014
  Transmission Date: 20230113
  Serious: Yes (Hospitalization)
  Sender: FDA-Public Use
  Company Number: None

PATIENT
  Age: 78 Year
  Sex: Male

DRUGS (1)
  1. DEFERASIROX [Suspect]
     Active Substance: DEFERASIROX
     Dosage: 360MG DAILY ORAL?
     Route: 048

REACTIONS (4)
  - Red blood cell count decreased [None]
  - Gastrointestinal infection [None]
  - Ascites [None]
  - Hypotension [None]

NARRATIVE: CASE EVENT DATE: 20221014
